FAERS Safety Report 20688652 (Version 3)
Quarter: 2022Q2

REPORT INFORMATION
  Report Type: Spontaneous
  Country: IT (occurrence: IT)
  Receive Date: 20220408
  Receipt Date: 20220420
  Transmission Date: 20220721
  Serious: Yes (Hospitalization)
  Sender: FDA-Public Use
  Company Number: IT-MINISAL02-854285

PATIENT
  Age: 54 Year
  Sex: Male

DRUGS (23)
  1. LORAZEPAM [Suspect]
     Active Substance: LORAZEPAM
     Indication: Anxiety
     Dosage: 2 DOSAGE FORM, IN TOTAL
     Route: 048
     Dates: start: 20211119, end: 20211119
  2. LORAZEPAM [Suspect]
     Active Substance: LORAZEPAM
     Dosage: 1 DOSAGE FORM, IN TOTAL, ORAL SOLUTION
     Route: 048
     Dates: start: 20211119, end: 20211119
  3. CAMPRAL [Suspect]
     Active Substance: ACAMPROSATE CALCIUM
     Indication: Alcohol withdrawal syndrome
     Dosage: 2 DOSAGE FORM, IN TOTAL
     Route: 048
     Dates: start: 20211119, end: 20211119
  4. LORAZEPAM [Suspect]
     Active Substance: LORAZEPAM
     Indication: Anxiety
     Dosage: 1 DOSAGE FORM, IN TOTAL
     Route: 048
     Dates: start: 20211119, end: 20211119
  5. TRAZODONE HYDROCHLORIDE [Suspect]
     Active Substance: TRAZODONE HYDROCHLORIDE
     Indication: Depression
     Dosage: 2 DOSAGE FORM, IN TOTAL
     Route: 048
     Dates: start: 20211119, end: 20211119
  6. LYRICA [Suspect]
     Active Substance: PREGABALIN
     Indication: Generalised anxiety disorder
     Dosage: 150 MILLIGRAM, IN TOTAL
     Route: 048
     Dates: start: 20211119, end: 20211119
  7. DULOXETINE HYDROCHLORIDE [Suspect]
     Active Substance: DULOXETINE HYDROCHLORIDE
     Indication: Depression
     Dosage: 1 DOSAGE FORM, IN TOTAL
     Route: 048
     Dates: start: 20211119, end: 20211119
  8. VALPROATE SODIUM [Concomitant]
     Active Substance: VALPROATE SODIUM
     Indication: Product used for unknown indication
     Dosage: UNK
     Route: 048
  9. LEVOMEPROMAZINE [Concomitant]
     Active Substance: LEVOMEPROMAZINE
     Indication: Schizophrenia
     Dosage: UNK
     Route: 048
  10. LEVOMEPROMAZINE [Concomitant]
     Active Substance: LEVOMEPROMAZINE
     Route: 048
  11. LEVOMEPROMAZINE [Concomitant]
     Active Substance: LEVOMEPROMAZINE
     Route: 048
  12. WELLBUTRIN 150 MG COMPRESSE A RILASCIO MODIFICATO. [Concomitant]
     Indication: Depression
     Dosage: UNK
     Route: 048
  13. WELLBUTRIN 150 MG COMPRESSE A RILASCIO MODIFICATO. [Concomitant]
     Route: 048
  14. WELLBUTRIN 150 MG COMPRESSE A RILASCIO MODIFICATO. [Concomitant]
     Route: 048
  15. SYCREST 5 MG SUBLINGUAL TABLETS [Concomitant]
     Indication: Mania
     Dosage: UNK
     Route: 048
  16. SYCREST 5 MG SUBLINGUAL TABLETS [Concomitant]
     Route: 048
  17. SYCREST 5 MG SUBLINGUAL TABLETS [Concomitant]
     Route: 048
  18. QUETIAPINE [Concomitant]
     Active Substance: QUETIAPINE
     Indication: Schizophrenia
     Dosage: UNK
     Route: 048
  19. QUETIAPINE [Concomitant]
     Active Substance: QUETIAPINE
     Route: 048
  20. QUETIAPINE [Concomitant]
     Active Substance: QUETIAPINE
     Route: 048
  21. SYNFLEX 550 MG COMPRESSE RIVESTITE [Concomitant]
     Dosage: ()
     Route: 048
  22. SYNFLEX 550 MG COMPRESSE RIVESTITE [Concomitant]
     Dosage: ()
     Route: 048
  23. SYNFLEX 550 MG COMPRESSE RIVESTITE [Concomitant]
     Indication: Pain
     Dosage: ()
     Route: 048

REACTIONS (4)
  - Psychomotor hyperactivity [Recovering/Resolving]
  - Oral pain [Recovering/Resolving]
  - Feeling jittery [Recovering/Resolving]
  - Suicide attempt [Recovering/Resolving]

NARRATIVE: CASE EVENT DATE: 20211119
